FAERS Safety Report 22192852 (Version 1)
Quarter: 2023Q2

REPORT INFORMATION
  Report Type: Spontaneous
  Country: US (occurrence: None)
  Receive Date: 20230410
  Receipt Date: 20230410
  Transmission Date: 20230721
  Serious: Yes (Hospitalization)
  Sender: FDA-Public Use
  Company Number: None

PATIENT
  Sex: Male

DRUGS (1)
  1. MIGLUSTAT [Suspect]
     Active Substance: MIGLUSTAT
     Indication: Niemann-Pick disease
     Dosage: FREQUENCY : TWICE A DAY;?
     Route: 048
     Dates: start: 20181218

REACTIONS (3)
  - Metapneumovirus infection [None]
  - Pneumonia [None]
  - Weight decreased [None]
